FAERS Safety Report 5272182-3 (Version None)
Quarter: 2007Q1

REPORT INFORMATION
  Report Type: 
  Country: None (occurrence: None)
  Receive Date: 20070319
  Receipt Date: 20070305
  Transmission Date: 20070707
  Serious: Yes (Hospitalization)
  Sender: FDA-Public Use
  Company Number: 2006BI012448

PATIENT
  Age: 22 Year
  Sex: Female
  Weight: 63.5036 kg

DRUGS (2)
  1. AVONEX [Suspect]
     Indication: MULTIPLE SCLEROSIS
     Dosage: 30 UG;QW;IM
     Route: 030
     Dates: start: 20010501, end: 20030801
  2. AVONEX [Suspect]
     Indication: MULTIPLE SCLEROSIS
     Dosage: 30 UG;QW;IM
     Route: 030
     Dates: start: 20030801, end: 20061201

REACTIONS (4)
  - ANOXIC ENCEPHALOPATHY [None]
  - COMA [None]
  - DYSPHAGIA [None]
  - EPILEPSY [None]
